FAERS Safety Report 9496970 (Version 1)
Quarter: 2013Q3

REPORT INFORMATION
  Report Type: Spontaneous
  Country: DE (occurrence: None)
  Receive Date: 20130830
  Receipt Date: 20130830
  Transmission Date: 20140515
  Serious: Yes (Other)
  Sender: FDA-Public Use
  Company Number: AUR-APL-2013-07035

PATIENT
  Sex: Male
  Weight: 5 kg

DRUGS (1)
  1. LAMOTRIGINE (LAMOTRIGINE) [Suspect]
     Indication: EPILEPSY
     Dosage: 300 MG (150 MG, 2 IN 1 D), TRANSMAMMARY
     Route: 063

REACTIONS (2)
  - Hepatic enzyme increased [None]
  - Exposure during breast feeding [None]
